FAERS Safety Report 6134120-0 (Version None)
Quarter: 2009Q1

REPORT INFORMATION
  Report Type: 
  Country: None (occurrence: None)
  Receive Date: 20090326
  Receipt Date: 20090316
  Transmission Date: 20090719
  Serious: Yes (Other)
  Sender: FDA-Public Use
  Company Number: FR-GENENTECH-279301

PATIENT
  Sex: Male

DRUGS (1)
  1. SOMATROPIN [Suspect]
     Indication: GROWTH HORMONE DEFICIENCY
     Dosage: 0.035 MG/KG, 7 TIMES A WEEK
     Dates: start: 20061115

REACTIONS (2)
  - COLOUR BLINDNESS [None]
  - MYOKYMIA [None]
